FAERS Safety Report 16144217 (Version 1)
Quarter: 2019Q2

REPORT INFORMATION
  Report Type: Spontaneous
  Country: NL (occurrence: NL)
  Receive Date: 20190401
  Receipt Date: 20190401
  Transmission Date: 20190711
  Serious: Yes (Hospitalization)
  Sender: FDA-Public Use
  Company Number: PHHY2019NL069538

PATIENT
  Sex: Female

DRUGS (1)
  1. METFORMINE HYDROCHLORIDE [Suspect]
     Active Substance: METFORMIN HYDROCHLORIDE
     Indication: DIABETES MELLITUS
     Dosage: 1000 MG, Q12H
     Route: 065
     Dates: start: 20180213, end: 20190211

REACTIONS (4)
  - Therapeutic response unexpected [Recovered/Resolved]
  - Nausea [Recovered/Resolved]
  - Blood potassium abnormal [Recovered/Resolved]
  - Diarrhoea [Recovered/Resolved]
